FAERS Safety Report 16614342 (Version 1)
Quarter: 2019Q3

REPORT INFORMATION
  Report Type: Other
  Country: AU (occurrence: AU)
  Receive Date: 20190723
  Receipt Date: 20190723
  Transmission Date: 20191004
  Serious: Yes (Life-Threatening, Hospitalization, Other)
  Sender: FDA-Public Use
  Company Number: AU-OSMOTICA_PHARMACEUTICAL_US_LLC-POI0573201900287

PATIENT
  Age: 28 Year
  Sex: Female

DRUGS (1)
  1. DIVIGEL [Suspect]
     Active Substance: ESTRADIOL
     Indication: PRODUCT USED FOR UNKNOWN INDICATION

REACTIONS (3)
  - Atypical haemolytic uraemic syndrome [Recovered/Resolved]
  - Maternal exposure during pregnancy [Recovered/Resolved]
  - Abortion incomplete [Recovered/Resolved]

NARRATIVE: CASE EVENT DATE: 2018
